FAERS Safety Report 7219395-9 (Version None)
Quarter: 2011Q1

REPORT INFORMATION
  Report Type: 
  Country: None (occurrence: None)
  Receive Date: 20110111
  Receipt Date: 20110107
  Transmission Date: 20110831
  Serious: No
  Sender: FDA-Public Use
  Company Number: US-PFIZER INC-2011004981

PATIENT
  Sex: Male
  Weight: 66.213 kg

DRUGS (1)
  1. TORISEL [Suspect]
     Indication: RENAL CANCER
     Dosage: UNK, WEEKLY
     Dates: start: 20101201

REACTIONS (2)
  - PRURITUS [None]
  - RASH [None]
